FAERS Safety Report 5567887-0 (Version None)
Quarter: 2008Q1

REPORT INFORMATION
  Report Type: 
  Country: None (occurrence: None)
  Receive Date: 20071218
  Receipt Date: 20071211
  Transmission Date: 20080703
  Serious: Yes (Life-Threatening)
  Sender: FDA-Public Use
  Company Number: TPA2007A02406

PATIENT
  Age: 38 Year
  Sex: Female
  Weight: 115.6672 kg

DRUGS (9)
  1. ACTOPLUS MET [Suspect]
     Indication: DIABETES MELLITUS
     Dosage: 15/850 MG, 2 IN 1 D, PER ORAL
     Route: 048
     Dates: start: 20071119, end: 20071121
  2. BYETTA [Concomitant]
  3. ZOVIRAX [Concomitant]
  4. REQUIP [Concomitant]
  5. WELLBUTRIN XL [Concomitant]
  6. PRILOSEC [Concomitant]
  7. XANAX (LANSOPRAZOLE) [Concomitant]
  8. ATORVASTATIN CALCIUM [Concomitant]
  9. LEXAPRO (ESICTALOPRAM OXALATE) [Concomitant]

REACTIONS (8)
  - ANAPHYLACTIC REACTION [None]
  - ANGIOEDEMA [None]
  - BURNING SENSATION [None]
  - FLUSHING [None]
  - GENERALISED ERYTHEMA [None]
  - HYPERSENSITIVITY [None]
  - PRURITUS [None]
  - THROAT TIGHTNESS [None]
